FAERS Safety Report 24665069 (Version 2)
Quarter: 2024Q4

REPORT INFORMATION
  Report Type: Spontaneous
  Country: FR (occurrence: FR)
  Receive Date: 20241126
  Receipt Date: 20241204
  Transmission Date: 20250115
  Serious: Yes (Death)
  Sender: MYLAN
  Company Number: None

PATIENT
  Age: 73 Year
  Sex: Female

DRUGS (6)
  1. CLOMIPRAMINE [Suspect]
     Active Substance: CLOMIPRAMINE
     Indication: Bipolar disorder
     Dosage: 50 MILLIGRAM, QD
     Route: 048
     Dates: end: 20241004
  2. QUETIAPINE FUMARATE [Suspect]
     Active Substance: QUETIAPINE FUMARATE
     Indication: Bipolar disorder
     Dosage: 400 MILLIGRAM, QD
     Route: 048
     Dates: end: 20241004
  3. TRIMEPRAZINE [Suspect]
     Active Substance: TRIMEPRAZINE
     Indication: Bipolar disorder
     Dosage: 15 MILLIGRAM, QD
     Route: 048
     Dates: end: 20241004
  4. VALPROMIDE [Suspect]
     Active Substance: VALPROMIDE
     Indication: Bipolar disorder
     Dosage: 1.2 GRAM, QD
     Route: 048
     Dates: end: 20241004
  5. TERALITHE [Suspect]
     Active Substance: LITHIUM CARBONATE
     Indication: Bipolar disorder
     Dosage: 800 MILLIGRAM, QD
     Route: 048
     Dates: end: 20241004
  6. OXAZEPAM [Suspect]
     Active Substance: OXAZEPAM
     Indication: Bipolar disorder
     Dosage: 10 MILLIGRAM, QD
     Route: 048
     Dates: end: 20241004

REACTIONS (1)
  - Cytotoxic lesions of corpus callosum [Fatal]

NARRATIVE: CASE EVENT DATE: 20241009
